FAERS Safety Report 13075702 (Version 1)
Quarter: 2016Q4

REPORT INFORMATION
  Report Type: Spontaneous
  Country: US (occurrence: US)
  Receive Date: 20161229
  Receipt Date: 20161229
  Transmission Date: 20170207
  Serious: Yes (Hospitalization)
  Sender: FDA-Public Use
  Company Number: None

PATIENT
  Age: 74 Year
  Sex: Female
  Weight: 52.2 kg

DRUGS (6)
  1. CLINDAMYCIN 150 MG 42 CAPSULES [Suspect]
     Active Substance: CLINDAMYCIN
     Indication: ENDODONTIC PROCEDURE
     Dosage: ?          QUANTITY:2 CAPSULE(S);?
     Route: 048
     Dates: start: 20161209, end: 20161214
  2. QVAR [Concomitant]
     Active Substance: BECLOMETHASONE DIPROPIONATE
  3. AZELASTINE SPRAY [Concomitant]
  4. CALCIUM WITH D [Concomitant]
     Active Substance: CALCIUM\VITAMIN D
  5. ACIDOPHILUS [Concomitant]
     Active Substance: LACTOBACILLUS ACIDOPHILUS
  6. MONTELUKAST [Concomitant]
     Active Substance: MONTELUKAST SODIUM

REACTIONS (5)
  - Skin exfoliation [None]
  - Hypersensitivity [None]
  - Stress [None]
  - Fatigue [None]
  - Blister [None]

NARRATIVE: CASE EVENT DATE: 20161215
